FAERS Safety Report 16908765 (Version 1)
Quarter: 2019Q4

REPORT INFORMATION
  Report Type: Spontaneous
  Country: US (occurrence: US)
  Receive Date: 20191011
  Receipt Date: 20191011
  Transmission Date: 20200122
  Serious: Yes (Disabling)
  Sender: FDA-Public Use
  Company Number: None

PATIENT
  Age: 45 Year
  Sex: Female

DRUGS (1)
  1. GLATIRAMER ACETATE. [Suspect]
     Active Substance: GLATIRAMER ACETATE
     Indication: MULTIPLE SCLEROSIS
     Dosage: ?          OTHER FREQUENCY:40MG 3 TIMES/WEEK;?
     Route: 058
     Dates: start: 20190320

REACTIONS (8)
  - Headache [None]
  - Visual impairment [None]
  - Injection site reaction [None]
  - Gait disturbance [None]
  - Disease progression [None]
  - Hypoacusis [None]
  - Multiple sclerosis relapse [None]
  - Musculoskeletal pain [None]

NARRATIVE: CASE EVENT DATE: 20190828
